FAERS Safety Report 23218074 (Version 3)
Quarter: 2024Q3

REPORT INFORMATION
  Report Type: Spontaneous
  Country: US (occurrence: US)
  Receive Date: 20231122
  Receipt Date: 20240718
  Transmission Date: 20241016
  Serious: No
  Sender: REGENERON
  Company Number: US-REGENERON PHARMACEUTICALS, INC.-2023-134061

PATIENT
  Sex: Male

DRUGS (1)
  1. EYLEA [Suspect]
     Active Substance: AFLIBERCEPT
     Indication: Product used for unknown indication
     Dosage: UNK (FORMULATION: PFS GERRESHEIMER; STRENGTH: 40MG/ML)

REACTIONS (2)
  - Syringe issue [Unknown]
  - Wrong technique in product usage process [Unknown]

NARRATIVE: CASE EVENT DATE: 20231023
